FAERS Safety Report 11096732 (Version 1)
Quarter: 2015Q2

REPORT INFORMATION
  Report Type: Report from Study
  Country: FR (occurrence: FR)
  Receive Date: 20150507
  Receipt Date: 20150507
  Transmission Date: 20150821
  Serious: Yes (Hospitalization)
  Sender: FDA-Public Use
  Company Number: FR-BAYER-2015-152800

PATIENT
  Age: 68 Year
  Sex: Male
  Weight: 92 kg

DRUGS (9)
  1. SORAFENIB (RAF KINASE INHIBITOR) [Suspect]
     Active Substance: SORAFENIB
     Indication: HEPATOCELLULAR CARCINOMA
     Dosage: DAILY DOSE 800 MG
     Route: 048
     Dates: start: 20140806, end: 20150115
  2. YTTRIUM (90 Y) [Suspect]
     Active Substance: YTTRIUM Y-90
     Dosage: DAILY DOSE .66 GBQ
     Route: 042
     Dates: start: 20140624, end: 20140624
  3. LERCANIDIPINE [Concomitant]
     Active Substance: LERCANIDIPINE
     Indication: HYPERTENSION
     Dosage: DAILY DOSE 10 MG
     Route: 048
     Dates: start: 20140811, end: 20150401
  4. GADOXETIC ACID DISODIUM [Suspect]
     Active Substance: GADOXETATE DISODIUM
     Dosage: 9 ML, ONCE
     Dates: start: 20140516, end: 20140516
  5. INDAPAMIDE W/PERINDOPRIL [Concomitant]
     Active Substance: INDAPAMIDE\PERINDOPRIL
     Indication: HYPERTENSION
     Dosage: DAILY DOSE 1 DF
     Route: 048
     Dates: start: 20140811
  6. PERINDOPRIL [Concomitant]
     Active Substance: PERINDOPRIL
     Indication: HYPERTENSION
     Dosage: DAILY DOSE 4 MG
     Route: 048
  7. YTTRIUM (90 Y) [Suspect]
     Active Substance: YTTRIUM Y-90
     Dosage: DAILY DOSE 1.5 GBQ
     Route: 042
     Dates: start: 20140731, end: 20140731
  8. DIFFU K [Concomitant]
     Active Substance: POTASSIUM CHLORIDE
     Indication: HYPOKALAEMIA
     Dosage: DAILY DOSE 1 DF
     Route: 048
     Dates: start: 201501
  9. XERIAL [Concomitant]
     Indication: PALMAR-PLANTAR ERYTHRODYSAESTHESIA SYNDROME
     Dosage: DAILY DOSE 1 DF
     Route: 023
     Dates: start: 20141203, end: 20150204

REACTIONS (6)
  - Ascites [Recovered/Resolved]
  - Asthenia [Recovered/Resolved]
  - Hepatic encephalopathy [Recovered/Resolved]
  - Confusional state [Recovered/Resolved]
  - General physical health deterioration [Recovered/Resolved]
  - Jaundice [Recovered/Resolved]

NARRATIVE: CASE EVENT DATE: 20150110
